FAERS Safety Report 19662295 (Version 1)
Quarter: 2021Q3

REPORT INFORMATION
  Report Type: Spontaneous
  Country: AU (occurrence: AU)
  Receive Date: 20210805
  Receipt Date: 20210805
  Transmission Date: 20211014
  Serious: Yes (Disabling, Other)
  Sender: FDA-Public Use
  Company Number: NVSC2021AU077391

PATIENT
  Age: 76 Year
  Sex: Female

DRUGS (3)
  1. SANDOSTATIN LAR DEPOT [Suspect]
     Active Substance: OCTREOTIDE ACETATE
     Indication: CARCINOID TUMOUR
     Dosage: 30 MG, Q4W
     Route: 030
     Dates: start: 20210427
  2. SANDOSTATIN LAR DEPOT [Suspect]
     Active Substance: OCTREOTIDE ACETATE
     Indication: NEUROENDOCRINE TUMOUR
     Dosage: 30 MG, Q4W
     Route: 030
     Dates: start: 20210330
  3. SANDOSTATIN LAR DEPOT [Suspect]
     Active Substance: OCTREOTIDE ACETATE

REACTIONS (5)
  - Needle issue [Not Recovered/Not Resolved]
  - Injection site swelling [Unknown]
  - Renal impairment [Unknown]
  - Feeling abnormal [Unknown]
  - Underdose [Unknown]

NARRATIVE: CASE EVENT DATE: 20210427
